FAERS Safety Report 7191561-0 (Version None)
Quarter: 2010Q4

REPORT INFORMATION
  Report Type: 
  Country: None (occurrence: None)
  Receive Date: 20101223
  Receipt Date: 20101215
  Transmission Date: 20110411
  Serious: Yes (Other)
  Sender: FDA-Public Use
  Company Number: FR-ROCHE-748887

PATIENT
  Age: 77 Year
  Sex: Female

DRUGS (1)
  1. AVASTIN [Suspect]
     Route: 065

REACTIONS (2)
  - ILL-DEFINED DISORDER [None]
  - LARGE INTESTINE PERFORATION [None]
